APPROVED DRUG PRODUCT: LEVAQUIN IN DEXTROSE 5% IN PLASTIC CONTAINER
Active Ingredient: LEVOFLOXACIN
Strength: EQ 250MG/50ML (EQ 5MG/ML) **Federal Register determination that product was not discontinued or withdrawn for safety or effectiveness reasons**
Dosage Form/Route: INJECTABLE;INJECTION
Application: N020635 | Product #002
Applicant: JANSSEN PHARMACEUTICALS INC
Approved: Dec 20, 1996 | RLD: Yes | RS: No | Type: DISCN